FAERS Safety Report 10024060 (Version 2)
Quarter: 2014Q1

REPORT INFORMATION
  Report Type: Spontaneous
  Country: US (occurrence: US)
  Receive Date: 20140320
  Receipt Date: 20140320
  Transmission Date: 20141002
  Serious: Yes (Life-Threatening)
  Sender: FDA-Public Use
  Company Number: US-PFIZER INC-2014077861

PATIENT
  Age: 41 Year
  Sex: Male

DRUGS (2)
  1. DOXYCYCLINE HYCLATE [Suspect]
     Indication: LEPTOSPIROSIS
  2. PIPERACILLIN/TAZOBACTAM [Suspect]
     Indication: LEPTOSPIROSIS

REACTIONS (2)
  - Jarisch-Herxheimer reaction [Recovering/Resolving]
  - Acute respiratory distress syndrome [Recovering/Resolving]
